FAERS Safety Report 9504458 (Version 2)
Quarter: 2014Q3

REPORT INFORMATION
  Report Type: Spontaneous
  Country: US (occurrence: US)
  Receive Date: 20130906
  Receipt Date: 20140722
  Transmission Date: 20150326
  Serious: Yes (Hospitalization)
  Sender: FDA-Public Use
  Company Number: US-BAYER-2013-105696

PATIENT
  Age: 20 Year
  Sex: Female
  Weight: 64.4 kg

DRUGS (2)
  1. MIRENA [Suspect]
     Active Substance: LEVONORGESTREL
     Indication: CONTRACEPTION
     Dosage: 20 MCG/24HR, CONT
     Route: 015
     Dates: start: 20110816, end: 20120504
  2. VALTREX [Concomitant]
     Active Substance: VALACYCLOVIR HYDROCHLORIDE
     Route: 048

REACTIONS (10)
  - Uterine perforation [None]
  - Seroma [None]
  - Flank pain [None]
  - Asthenia [None]
  - Device issue [None]
  - Pelvic pain [None]
  - Injury [None]
  - Infection [None]
  - Medical device pain [None]
  - Anaemia [None]

NARRATIVE: CASE EVENT DATE: 201109
